FAERS Safety Report 21748255 (Version 1)
Quarter: 2022Q4

REPORT INFORMATION
  Report Type: Other
  Country: CA (occurrence: CA)
  Receive Date: 20221219
  Receipt Date: 20221219
  Transmission Date: 20230113
  Serious: Yes (Hospitalization, Disabling, Other)
  Sender: FDA-Public Use
  Company Number: CA-Stemline Therapeutics, Inc.-2022ST000435

PATIENT
  Age: 81 Year
  Sex: Female

DRUGS (2)
  1. ELZONRIS [Suspect]
     Active Substance: TAGRAXOFUSP-ERZS
     Indication: Blastic plasmacytoid dendritic cell neoplasia
     Route: 042
  2. ELZONRIS [Suspect]
     Active Substance: TAGRAXOFUSP-ERZS
     Dosage: CONSOLIDATION CYCLE ATTEMPTED 4 MONTHS AFTER PRECIOUS CYCLE.
     Route: 042

REACTIONS (13)
  - Blue toe syndrome [Unknown]
  - Gangrene [Recovered/Resolved]
  - Bicytopenia [Unknown]
  - Hypoxia [Unknown]
  - Hypervolaemia [Unknown]
  - Necrosis [Unknown]
  - Toe amputation [Unknown]
  - Microembolism [Unknown]
  - Thrombocytopenia [Unknown]
  - Capillary leak syndrome [Unknown]
  - Tachycardia [Unknown]
  - Weight increased [Unknown]
  - Fatigue [Unknown]
